FAERS Safety Report 20574248 (Version 2)
Quarter: 2022Q1

REPORT INFORMATION
  Report Type: Spontaneous
  Country: US (occurrence: US)
  Receive Date: 20220309
  Receipt Date: 20220315
  Transmission Date: 20220423
  Serious: No
  Sender: FDA-Public Use
  Company Number: US-PFIZER INC-2021867491

PATIENT
  Age: 56 Year
  Sex: Male

DRUGS (3)
  1. IBRANCE [Suspect]
     Active Substance: PALBOCICLIB
     Dosage: 125 MG, CYCLIC (DAILY FOR 21 DAYS ON, 7 DAYS OFF ON A 28 DAYS CYCLE)
  2. IBRANCE [Suspect]
     Active Substance: PALBOCICLIB
     Dosage: 100 MG
     Dates: start: 20210623
  3. KEYTRUDA [Suspect]
     Active Substance: PEMBROLIZUMAB
     Dosage: UNK

REACTIONS (7)
  - Colitis [Unknown]
  - Diarrhoea [Unknown]
  - Blood glucose increased [Unknown]
  - Blood creatinine increased [Unknown]
  - Seasonal allergy [Not Recovered/Not Resolved]
  - Gastrointestinal disorder [Unknown]
  - Drainage [Unknown]

NARRATIVE: CASE EVENT DATE: 20210101
